FAERS Safety Report 8219467-6 (Version None)
Quarter: 2012Q1

REPORT INFORMATION
  Report Type: 
  Country: None (occurrence: None)
  Receive Date: 20120319
  Receipt Date: 20120315
  Transmission Date: 20120608
  Serious: No
  Sender: FDA-Public Use
  Company Number: US-PFIZER INC-2012069043

PATIENT
  Sex: Male
  Weight: 102 kg

DRUGS (8)
  1. PLAVIX [Concomitant]
     Dosage: UNK
  2. ATENOLOL [Concomitant]
     Dosage: UNK
  3. LIPITOR [Suspect]
     Indication: CARDIAC DISORDER
     Dosage: 40 MG, 1X/DAY
     Route: 048
     Dates: start: 19950101, end: 20120201
  4. ZETIA [Concomitant]
     Dosage: UNK
  5. FISH OIL [Concomitant]
     Dosage: UNK
  6. NORVASC [Concomitant]
     Dosage: UNK
  7. COENZYME Q10 [Concomitant]
     Dosage: UNK
  8. ATORVASTATIN CALCIUM [Suspect]
     Indication: CARDIAC DISORDER
     Dosage: 40 MG, 1X/DAY
     Route: 048
     Dates: start: 20120201, end: 20120301

REACTIONS (5)
  - STRESS [None]
  - MALAISE [None]
  - DIARRHOEA [None]
  - ABDOMINAL PAIN UPPER [None]
  - LACTOSE INTOLERANCE [None]
